FAERS Safety Report 5392928-3 (Version None)
Quarter: 2007Q3

REPORT INFORMATION
  Report Type: 
  Country: None (occurrence: None)
  Receive Date: 20070721
  Receipt Date: 20070710
  Transmission Date: 20080115
  Serious: Yes (Other)
  Sender: FDA-Public Use
  Company Number: US-PFIZER INC-2007058863

PATIENT
  Sex: Male
  Weight: 104.3 kg

DRUGS (3)
  1. CHANTIX [Suspect]
     Indication: SMOKING CESSATION THERAPY
  2. NEURONTIN [Suspect]
     Indication: POST HERPETIC NEURALGIA
     Dates: start: 20060901, end: 20070101
  3. LYRICA [Suspect]
     Indication: POST HERPETIC NEURALGIA

REACTIONS (5)
  - DRUG EFFECT DECREASED [None]
  - EYE SWELLING [None]
  - HERPES ZOSTER [None]
  - PAIN [None]
  - POST HERPETIC NEURALGIA [None]
